FAERS Safety Report 26015888 (Version 1)
Quarter: 2025Q4

REPORT INFORMATION
  Report Type: Spontaneous
  Country: US (occurrence: US)
  Receive Date: 20251109
  Receipt Date: 20251109
  Transmission Date: 20260117
  Serious: No
  Sender: SANOFI AVENTIS
  Company Number: US-SA-2025SA325579

PATIENT
  Sex: Male

DRUGS (4)
  1. ALPROLIX [Suspect]
     Active Substance: EFTRENONACOG ALFA
     Indication: Factor IX deficiency
     Dosage: 1600 UNITS (1440-1760 UNITS) , QW
     Route: 042
     Dates: start: 202410
  2. ALPROLIX [Suspect]
     Active Substance: EFTRENONACOG ALFA
     Indication: Factor IX deficiency
     Dosage: 1600 UNITS (1440-1760 UNITS) , QW
     Route: 042
     Dates: start: 202410
  3. ALPROLIX [Suspect]
     Active Substance: EFTRENONACOG ALFA
     Dosage: 1600 UNITS (1440-1760 UNITS) , PRN
     Route: 042
  4. ALPROLIX [Suspect]
     Active Substance: EFTRENONACOG ALFA
     Dosage: 1600 UNITS (1440-1760 UNITS) , PRN
     Route: 042

REACTIONS (2)
  - Poor venous access [Unknown]
  - Pain in extremity [Unknown]
